FAERS Safety Report 5023124-7 (Version None)
Quarter: 2006Q2

REPORT INFORMATION
  Report Type: 
  Country: None (occurrence: None)
  Receive Date: 20060525
  Receipt Date: 20060525
  Transmission Date: 20061013
  Serious: Yes (Other)
  Sender: FDA-Public Use
  Company Number: None

PATIENT
  Sex: Female
  Weight: 51.2565 kg

DRUGS (1)
  1. INTRAUTERINE COPPER CONTRACEPTIVE [Suspect]
     Dates: start: 20041101, end: 20060201

REACTIONS (2)
  - DEVICE FAILURE [None]
  - PREGNANCY WITH CONTRACEPTIVE DEVICE [None]
